FAERS Safety Report 5933896-2 (Version None)
Quarter: 2008Q4

REPORT INFORMATION
  Report Type: 
  Country: None (occurrence: None)
  Receive Date: 20081024
  Receipt Date: 20081015
  Transmission Date: 20090506
  Serious: Yes (Hospitalization)
  Sender: FDA-Public Use
  Company Number: 14748

PATIENT
  Age: 53 Year
  Sex: Male
  Weight: 77.1115 kg

DRUGS (3)
  1. MORPHINE SULFATE ER TABLETS 30MG (ETHEX CORP.) [Suspect]
     Indication: PAIN
     Dosage: 30MG TWICE DAILY ORAL
     Route: 048
     Dates: start: 20050101, end: 20080629
  2. ULTRAM [Concomitant]
  3. XANAX [Concomitant]

REACTIONS (9)
  - CHEST DISCOMFORT [None]
  - CHEST PAIN [None]
  - DIPLOPIA [None]
  - FLASHBACK [None]
  - HYPERTENSION [None]
  - INSOMNIA [None]
  - PANIC ATTACK [None]
  - SUICIDAL IDEATION [None]
  - TACHYCARDIA [None]
